FAERS Safety Report 11180019 (Version 1)
Quarter: 2015Q2

REPORT INFORMATION
  Report Type: Spontaneous
  Country: IN (occurrence: IN)
  Receive Date: 20150611
  Receipt Date: 20150611
  Transmission Date: 20150821
  Serious: Yes (Hospitalization)
  Sender: FDA-Public Use
  Company Number: IN-009507513-1506IND004629

PATIENT
  Age: 72 Year
  Sex: Female
  Weight: 133 kg

DRUGS (1)
  1. JANUVIA [Suspect]
     Active Substance: SITAGLIPTIN PHOSPHATE
     Indication: DIABETES MELLITUS
     Dosage: 1 TABLET PER DAY (OD), STRENGTH: 100 MG
     Route: 048

REACTIONS (2)
  - Lung infection [Unknown]
  - Cough [Unknown]

NARRATIVE: CASE EVENT DATE: 20150604
